FAERS Safety Report 5338393-3 (Version None)
Quarter: 2007Q2

REPORT INFORMATION
  Report Type: 
  Country: None (occurrence: None)
  Receive Date: 20070530
  Receipt Date: 20070522
  Transmission Date: 20071010
  Serious: Yes (Hospitalization, Other)
  Sender: FDA-Public Use
  Company Number: US-ELI_LILLY_AND_COMPANY-US200705005626

PATIENT
  Age: 15 Year
  Sex: Male

DRUGS (1)
  1. HUMATROPE [Suspect]
     Dosage: UNK, UNKNOWN
     Dates: start: 20030101

REACTIONS (8)
  - ANGER [None]
  - BLOOD GLUCOSE FLUCTUATION [None]
  - CONVULSION [None]
  - DEPRESSION [None]
  - DIABETES INSIPIDUS [None]
  - EPILEPSY [None]
  - GRAND MAL CONVULSION [None]
  - LETHARGY [None]
